FAERS Safety Report 6963705-4 (Version None)
Quarter: 2010Q3

REPORT INFORMATION
  Report Type: 
  Country: None (occurrence: None)
  Receive Date: 20100902
  Receipt Date: 20100727
  Transmission Date: 20110219
  Serious: Yes (Death, Other)
  Sender: FDA-Public Use
  Company Number: US-BAXTER-2010BH002318

PATIENT
  Age: 43 Year
  Sex: Male

DRUGS (57)
  1. HEPARIN SODIUM INJECTION [Suspect]
     Indication: CATHETERISATION CARDIAC
     Route: 040
     Dates: start: 20080124, end: 20080124
  2. HEPARIN SODIUM INJECTION [Suspect]
     Indication: INTRA-AORTIC BALLOON PLACEMENT
     Route: 040
     Dates: start: 20080124, end: 20080124
  3. HEPARIN SODIUM INJECTION [Suspect]
     Indication: CORONARY ARTERY BYPASS
     Route: 040
     Dates: start: 20080124, end: 20080124
  4. HEPARIN SODIUM INJECTION [Suspect]
     Indication: THROMBECTOMY
     Route: 040
     Dates: start: 20080124, end: 20080124
  5. HEPARIN SODIUM INJECTION [Suspect]
     Indication: VASCULAR GRAFT
     Route: 040
     Dates: start: 20080124, end: 20080124
  6. HEPARIN SODIUM INJECTION [Suspect]
     Route: 042
     Dates: start: 20080125, end: 20080125
  7. HEPARIN SODIUM INJECTION [Suspect]
     Route: 042
     Dates: start: 20080125, end: 20080125
  8. HEPARIN SODIUM INJECTION [Suspect]
     Route: 042
     Dates: start: 20080125, end: 20080125
  9. HEPARIN SODIUM INJECTION [Suspect]
     Route: 042
     Dates: start: 20080125, end: 20080125
  10. HEPARIN SODIUM INJECTION [Suspect]
     Route: 042
     Dates: start: 20080125, end: 20080125
  11. HEPARIN SODIUM INJECTION [Suspect]
     Route: 042
     Dates: start: 20080129, end: 20080129
  12. HEPARIN SODIUM INJECTION [Suspect]
     Route: 042
     Dates: start: 20080129, end: 20080129
  13. HEPARIN SODIUM INJECTION [Suspect]
     Route: 042
     Dates: start: 20080129, end: 20080129
  14. HEPARIN SODIUM INJECTION [Suspect]
     Route: 042
     Dates: start: 20080129, end: 20080129
  15. HEPARIN SODIUM INJECTION [Suspect]
     Route: 042
     Dates: start: 20080129, end: 20080129
  16. HEPARIN SODIUM INJECTION [Suspect]
     Route: 042
     Dates: start: 20080125, end: 20080125
  17. HEPARIN SODIUM INJECTION [Suspect]
     Route: 042
     Dates: start: 20080125, end: 20080125
  18. HEPARIN SODIUM INJECTION [Suspect]
     Route: 042
     Dates: start: 20080125, end: 20080125
  19. HEPARIN SODIUM INJECTION [Suspect]
     Route: 042
     Dates: start: 20080125, end: 20080125
  20. HEPARIN SODIUM INJECTION [Suspect]
     Route: 042
     Dates: start: 20080125, end: 20080125
  21. HEPARIN SODIUM INJECTION [Suspect]
     Route: 042
     Dates: start: 20080128, end: 20080128
  22. HEPARIN SODIUM INJECTION [Suspect]
     Route: 042
     Dates: start: 20080128, end: 20080128
  23. HEPARIN SODIUM INJECTION [Suspect]
     Route: 042
     Dates: start: 20080128, end: 20080128
  24. HEPARIN SODIUM INJECTION [Suspect]
     Route: 042
     Dates: start: 20080128, end: 20080128
  25. HEPARIN SODIUM INJECTION [Suspect]
     Route: 042
     Dates: start: 20080128, end: 20080128
  26. HEPARIN SODIUM INJECTION [Suspect]
     Route: 040
     Dates: start: 20080128, end: 20080128
  27. HEPARIN SODIUM INJECTION [Suspect]
     Route: 040
     Dates: start: 20080128, end: 20080128
  28. HEPARIN SODIUM INJECTION [Suspect]
     Route: 040
     Dates: start: 20080128, end: 20080128
  29. HEPARIN SODIUM INJECTION [Suspect]
     Route: 040
     Dates: start: 20080128, end: 20080128
  30. HEPARIN SODIUM INJECTION [Suspect]
     Route: 040
     Dates: start: 20080128, end: 20080128
  31. HEPARIN SODIUM INJECTION [Suspect]
     Route: 042
     Dates: start: 20080129, end: 20080129
  32. HEPARIN SODIUM INJECTION [Suspect]
     Route: 042
     Dates: start: 20080129, end: 20080129
  33. HEPARIN SODIUM INJECTION [Suspect]
     Route: 042
     Dates: start: 20080129, end: 20080129
  34. HEPARIN SODIUM INJECTION [Suspect]
     Route: 042
     Dates: start: 20080129, end: 20080129
  35. HEPARIN SODIUM INJECTION [Suspect]
     Route: 042
     Dates: start: 20080129, end: 20080129
  36. HEPARIN SODIUM 5,000 UNITS IN DEXTROSE 5% [Suspect]
     Indication: INTRA-AORTIC BALLOON PLACEMENT
     Route: 042
     Dates: start: 20080125, end: 20080128
  37. PRINIVIL [Concomitant]
     Indication: PRODUCT USED FOR UNKNOWN INDICATION
     Route: 065
  38. ACETYLSALICYLIC ACID [Concomitant]
     Indication: PRODUCT USED FOR UNKNOWN INDICATION
     Route: 065
  39. LEVITRA [Concomitant]
     Indication: PRODUCT USED FOR UNKNOWN INDICATION
     Route: 065
  40. MUCINEX [Concomitant]
     Indication: PRODUCT USED FOR UNKNOWN INDICATION
  41. NASACORT [Concomitant]
     Indication: PRODUCT USED FOR UNKNOWN INDICATION
     Route: 065
  42. GERITOL [Concomitant]
     Indication: PRODUCT USED FOR UNKNOWN INDICATION
     Route: 065
  43. CEFTRIAXONE [Concomitant]
     Indication: PRODUCT USED FOR UNKNOWN INDICATION
     Route: 065
  44. AZITHROMYCIN [Concomitant]
     Indication: PRODUCT USED FOR UNKNOWN INDICATION
     Route: 065
  45. REGULAR INSULIN [Concomitant]
     Indication: PRODUCT USED FOR UNKNOWN INDICATION
     Route: 065
  46. NORMAL SALINE [Concomitant]
     Indication: PRODUCT USED FOR UNKNOWN INDICATION
     Route: 065
  47. LASIX [Concomitant]
     Indication: PRODUCT USED FOR UNKNOWN INDICATION
     Route: 065
  48. POTASSIUM CHLORIDE [Concomitant]
     Indication: PRODUCT USED FOR UNKNOWN INDICATION
     Route: 065
  49. HYDROCODONE [Concomitant]
     Indication: PRODUCT USED FOR UNKNOWN INDICATION
     Route: 065
  50. MUPIROCIN [Concomitant]
     Indication: PRODUCT USED FOR UNKNOWN INDICATION
     Route: 065
  51. ALLOPURINOL [Concomitant]
     Indication: PRODUCT USED FOR UNKNOWN INDICATION
     Route: 065
  52. DIGOXIN [Concomitant]
     Indication: PRODUCT USED FOR UNKNOWN INDICATION
     Route: 065
  53. ISORDIL [Concomitant]
     Indication: PRODUCT USED FOR UNKNOWN INDICATION
     Route: 065
  54. ATIVAN [Concomitant]
     Indication: PRODUCT USED FOR UNKNOWN INDICATION
     Route: 065
  55. PERCOCET [Concomitant]
     Indication: PRODUCT USED FOR UNKNOWN INDICATION
     Route: 065
  56. MORPHINE [Concomitant]
     Indication: PRODUCT USED FOR UNKNOWN INDICATION
     Route: 065
  57. MIDAZOLAM HCL [Concomitant]
     Indication: PRODUCT USED FOR UNKNOWN INDICATION
     Route: 065

REACTIONS (24)
  - ABDOMINAL PAIN UPPER [None]
  - BLISTER [None]
  - BLOOD POTASSIUM INCREASED [None]
  - BRADYCARDIA [None]
  - CARDIAC ARREST [None]
  - CARDIOGENIC SHOCK [None]
  - CORONARY ARTERY BYPASS [None]
  - CYANOSIS [None]
  - FLUID OVERLOAD [None]
  - GANGRENE [None]
  - HEPARIN-INDUCED THROMBOCYTOPENIA [None]
  - HEPATIC FUNCTION ABNORMAL [None]
  - HYPERGLYCAEMIA [None]
  - HYPERSENSITIVITY [None]
  - HYPOXIC-ISCHAEMIC ENCEPHALOPATHY [None]
  - INTERNATIONAL NORMALISED RATIO INCREASED [None]
  - ISCHAEMIC CARDIOMYOPATHY [None]
  - METABOLIC ACIDOSIS [None]
  - MULTI-ORGAN FAILURE [None]
  - PERIPHERAL ISCHAEMIA [None]
  - PULMONARY OEDEMA [None]
  - RENAL FAILURE [None]
  - RESPIRATORY FAILURE [None]
  - THROMBOSIS [None]
